FAERS Safety Report 25715099 (Version 1)
Quarter: 2025Q3

REPORT INFORMATION
  Report Type: Spontaneous
  Country: US (occurrence: None)
  Receive Date: 20250821
  Receipt Date: 20250821
  Transmission Date: 20251020
  Serious: Yes (Death)
  Sender: FDA-CTU
  Company Number: None

PATIENT
  Age: 79 Year
  Sex: Female

DRUGS (12)
  1. BOTOX [Suspect]
     Active Substance: ONABOTULINUMTOXINA
     Indication: Migraine
  2. AMLODIPINE BESYLATE [Concomitant]
     Active Substance: AMLODIPINE BESYLATE
  3. ATENOLOL 100MG TABLETS [Concomitant]
  4. FLONASE 50MCG NAS SPRAY RX (120SPR) [Concomitant]
  5. LEVOTHYROXINE 0.088MG (88MCG) CAPS [Concomitant]
  6. LOVASTATIN 20MG TABLETS [Concomitant]
  7. MULTIVITAMIN WOMEN 50+ TABLETS [Concomitant]
  8. CETIRIZINE [Concomitant]
     Active Substance: CETIRIZINE HYDROCHLORIDE
  9. CO Q-10 100MG CAPSULES [Concomitant]
  10. MAGNESIUM 250MG TABLETS [Concomitant]
  11. OMEPRAZOLE [Concomitant]
     Active Substance: OMEPRAZOLE
  12. VITAMIN B-2100MG TABLETS [Concomitant]
     Indication: Migraine
     Route: 030
     Dates: start: 202405

REACTIONS (1)
  - Death [None]

NARRATIVE: CASE EVENT DATE: 20250627
